FAERS Safety Report 8523346-4 (Version None)
Quarter: 2012Q3

REPORT INFORMATION
  Report Type: 
  Country: None (occurrence: None)
  Receive Date: 20120709
  Receipt Date: 20120626
  Transmission Date: 20120928
  Serious: Yes (Death)
  Sender: FDA-Public Use
  Company Number: MPS1-1000719

PATIENT
  Age: 12 Year
  Sex: Male
  Weight: 13.8 kg

DRUGS (7)
  1. ALDURAZYME [Suspect]
     Indication: MUCOPOLYSACCHARIDOSIS I
     Dosage: 0.63 MG/KG,QW, INTRAVENOUS
     Route: 042
     Dates: start: 20031021, end: 20120617
  2. MORPHINE [Concomitant]
  3. FLUTICASONE PROPIONATE/SALMETEROL [Concomitant]
  4. CAPTOPRIL [Concomitant]
  5. FUROSEMIDE (FUROSEMIDE) [Concomitant]
  6. VENTILAN (SALBUTAMOL) [Concomitant]
  7. ACETAZOLAMIDE (ACETAZOLOMIDE) [Concomitant]

REACTIONS (1)
  - CHRONIC RESPIRATORY FAILURE [None]
